FAERS Safety Report 5950634-8 (Version None)
Quarter: 2008Q4

REPORT INFORMATION
  Report Type: 
  Country: None (occurrence: None)
  Receive Date: 20081112
  Receipt Date: 20081110
  Transmission Date: 20090506
  Serious: Yes (Other)
  Sender: FDA-Public Use
  Company Number: US-ASTRAZENECA-2008UW25114

PATIENT
  Age: 50 Year
  Sex: Female
  Weight: 99.8 kg

DRUGS (11)
  1. CRESTOR [Suspect]
     Indication: BLOOD CHOLESTEROL INCREASED
     Dosage: 5 MG TO 20 MG
     Route: 048
  2. CRESTOR [Suspect]
     Dosage: 40 MG
     Route: 048
     Dates: start: 20080801
  3. POTASSIUM CHLORIDE [Concomitant]
  4. CYMBALTA [Concomitant]
     Dosage: 20 MG
  5. ACIPHEX [Concomitant]
     Dosage: 40 MG
  6. ZANAC [Concomitant]
  7. VICODIN [Concomitant]
  8. HYDROCHLOROTHIAZIDE [Concomitant]
  9. DIAVAN [Concomitant]
  10. ASPIRIN [Concomitant]
  11. METOPROLOL TARTRATE [Concomitant]

REACTIONS (1)
  - MYOCARDIAL INFARCTION [None]
